FAERS Safety Report 6167373-3 (Version None)
Quarter: 2009Q2

REPORT INFORMATION
  Report Type: 
  Country: None (occurrence: None)
  Receive Date: 20090424
  Receipt Date: 20090420
  Transmission Date: 20091009
  Serious: Yes (Death, Hospitalization)
  Sender: FDA-Public Use
  Company Number: US-JNJFOC-20090400798

PATIENT
  Sex: Male
  Weight: 75.66 kg

DRUGS (2)
  1. DOXIL [Suspect]
     Indication: MULTIPLE MYELOMA
     Dosage: STARTED, WEEK OF 23-JAN-2009
     Route: 042
  2. VELCADE [Suspect]
     Indication: MULTIPLE MYELOMA
     Route: 042

REACTIONS (3)
  - ACUTE RESPIRATORY FAILURE [None]
  - CEREBRAL HAEMORRHAGE [None]
  - FALL [None]
